FAERS Safety Report 7917775-7 (Version None)
Quarter: 2011Q4

REPORT INFORMATION
  Report Type: 
  Country: None (occurrence: None)
  Receive Date: 20111114
  Receipt Date: 20111031
  Transmission Date: 20120403
  Serious: Yes (Other)
  Sender: FDA-Public Use
  Company Number: DSA_48143_2011

PATIENT
  Sex: Male

DRUGS (2)
  1. LAMICTAL [Suspect]
     Indication: DEPRESSION
     Dosage: (200MG PER DAY, FREQUENCY UNKNOWN)
     Dates: start: 20110101
  2. WELLBUTRIN [Suspect]
     Indication: DEPRESSION
     Dosage: (150MG PER DAY, FREQUENCY UNKNOWN)
     Dates: start: 20110101

REACTIONS (2)
  - TIC [None]
  - AGGRESSION [None]
